FAERS Safety Report 21263060 (Version 1)
Quarter: 2022Q3

REPORT INFORMATION
  Report Type: Spontaneous
  Country: US (occurrence: None)
  Receive Date: 20220826
  Receipt Date: 20220826
  Transmission Date: 20221026
  Serious: Yes (Hospitalization)
  Sender: FDA-Public Use
  Company Number: None

PATIENT
  Age: 88 Year
  Sex: Male
  Weight: 107 kg

DRUGS (8)
  1. BEBTELOVIMAB [Suspect]
     Active Substance: BEBTELOVIMAB
     Indication: COVID-19
     Dosage: OTHER FREQUENCY : ONCE;?
     Route: 040
     Dates: start: 20220825, end: 20220825
  2. acetamimophen [Concomitant]
     Dates: start: 20220824
  3. ALLOPURINOL [Concomitant]
     Active Substance: ALLOPURINOL
     Dates: start: 20220825
  4. ASPIRIN [Concomitant]
     Active Substance: ASPIRIN
     Dates: start: 20220825
  5. ATENOLOL [Concomitant]
     Active Substance: ATENOLOL
     Dates: start: 20220825
  6. ATORVASTATIN [Concomitant]
     Active Substance: ATORVASTATIN
     Dates: start: 20220825
  7. HEPARIN [Concomitant]
     Active Substance: HEPARIN SODIUM
     Dates: start: 20220825
  8. PANTOPRAZOLE [Concomitant]
     Active Substance: PANTOPRAZOLE
     Dates: start: 20220825

REACTIONS (3)
  - Pyrexia [None]
  - Cough [None]
  - Balance disorder [None]

NARRATIVE: CASE EVENT DATE: 20220825
